FAERS Safety Report 17206135 (Version 1)
Quarter: 2019Q4

REPORT INFORMATION
  Report Type: Spontaneous
  Country: ES (occurrence: ES)
  Receive Date: 20191227
  Receipt Date: 20191227
  Transmission Date: 20200122
  Serious: Yes (Hospitalization)
  Sender: FDA-Public Use
  Company Number: ES-TEVA-2019-ES-1157515

PATIENT
  Sex: Male

DRUGS (2)
  1. NOLOTIL (METAMIZOLE MAGNESIUM) [Suspect]
     Active Substance: METAMIZOLE MAGNESIUM
     Route: 030
     Dates: start: 20180131, end: 20180131
  2. DICLOFENACO (745A) [Suspect]
     Active Substance: DICLOFENAC
     Route: 030
     Dates: start: 20180131, end: 20180131

REACTIONS (1)
  - Necrotising fasciitis [Unknown]

NARRATIVE: CASE EVENT DATE: 20180131
